FAERS Safety Report 4835441-1 (Version None)
Quarter: 2005Q4

REPORT INFORMATION
  Report Type: 
  Country: None (occurrence: None)
  Receive Date: 20051122
  Receipt Date: 20051122
  Transmission Date: 20060501
  Serious: No
  Sender: FDA-Public Use
  Company Number: None

PATIENT
  Sex: Female

DRUGS (1)
  1. ZOCOR [Suspect]
     Indication: HYPOLIPIDAEMIA
     Dosage: 20 MG PO 1 Q DAY
     Route: 048

REACTIONS (1)
  - MUSCLE SPASMS [None]
